FAERS Safety Report 23608989 (Version 1)
Quarter: 2024Q1

REPORT INFORMATION
  Report Type: Spontaneous
  Country: US (occurrence: US)
  Receive Date: 20240308
  Receipt Date: 20240308
  Transmission Date: 20240409
  Serious: No
  Sender: FDA-Public Use
  Company Number: US-JNJFOC-20240269353

PATIENT
  Sex: Female

DRUGS (1)
  1. WOMENS ROGAINE UNSCENTED [Suspect]
     Active Substance: MINOXIDIL
     Indication: Alopecia
     Dosage: APPLIED DIRECTLY TO SCALP WITHOUT MEASURING
     Route: 061
     Dates: start: 202402

REACTIONS (2)
  - Wrong technique in product usage process [Unknown]
  - Product formulation issue [Unknown]

NARRATIVE: CASE EVENT DATE: 20240201
